FAERS Safety Report 9222533 (Version 1)
Quarter: 2013Q1

REPORT INFORMATION
  Report Type: Spontaneous
  Country: FR (occurrence: FR)
  Receive Date: 20120914
  Receipt Date: 20120914
  Transmission Date: 20140127
  Serious: Yes (Other)
  Sender: FDA-Public Use
  Company Number: JPI-P-021336

PATIENT
  Age: 65 Year
  Sex: Female

DRUGS (3)
  1. XYREM [Suspect]
     Indication: CATAPLEXY
     Dosage: 4.5 GM (2.25 GM,2 IN 1 D),ORAL
     Route: 048
     Dates: start: 20120327, end: 2012
  2. METHYLPHENIDATE (METHYLPHENIDATE) [Concomitant]
  3. ANAFRANIL (CLOMIPRAMINE HYDROCHLORIDE) [Concomitant]

REACTIONS (7)
  - Sleep apnoea syndrome [None]
  - Burning sensation [None]
  - Vision blurred [None]
  - Pain [None]
  - Nervousness [None]
  - Fatigue [None]
  - Sleep disorder [None]
